FAERS Safety Report 4571999-8 (Version None)
Quarter: 2005Q1

REPORT INFORMATION
  Report Type: 
  Country: None (occurrence: None)
  Receive Date: 20050202
  Receipt Date: 20050114
  Transmission Date: 20050727
  Serious: No
  Sender: FDA-Public Use
  Company Number: USA050188504

PATIENT
  Age: 7 Year
  Sex: Male

DRUGS (1)
  1. STRATTERA [Suspect]

REACTIONS (2)
  - HEPATIC ENZYME INCREASED [None]
  - INFLUENZA LIKE ILLNESS [None]
